FAERS Safety Report 13445750 (Version 1)
Quarter: 2017Q2

REPORT INFORMATION
  Report Type: Report from Study
  Country: None (occurrence: BR)
  Receive Date: 20170416
  Receipt Date: 20170416
  Transmission Date: 20170830
  Serious: Yes (Other)
  Sender: FDA-Public Use
  Company Number: BR-ABBVIE-17K-020-1943914-00

PATIENT
  Sex: Male
  Weight: 89 kg

DRUGS (1)
  1. HUMIRA [Suspect]
     Active Substance: ADALIMUMAB
     Indication: RHEUMATOID ARTHRITIS
     Route: 058
     Dates: start: 20170126, end: 20170223

REACTIONS (2)
  - Bone erosion [Unknown]
  - Postoperative care [Unknown]

NARRATIVE: CASE EVENT DATE: 2017
